FAERS Safety Report 6837650-9 (Version None)
Quarter: 2010Q3

REPORT INFORMATION
  Report Type: 
  Country: None (occurrence: None)
  Receive Date: 20100713
  Receipt Date: 20070519
  Transmission Date: 20110219
  Serious: No
  Sender: FDA-Public Use
  Company Number: US-PFIZER INC-2007040667

PATIENT
  Sex: Male
  Weight: 88.5 kg

DRUGS (4)
  1. CHANTIX [Suspect]
     Indication: SMOKING CESSATION THERAPY
     Dates: start: 20070513
  2. NEXIUM [Concomitant]
  3. ZOCOR [Concomitant]
  4. CARTIA XT [Concomitant]

REACTIONS (2)
  - ABNORMAL DREAMS [None]
  - DECREASED APPETITE [None]
